FAERS Safety Report 14651757 (Version 1)
Quarter: 2018Q1

REPORT INFORMATION
  Report Type: Spontaneous
  Country: GB (occurrence: GB)
  Receive Date: 20180317
  Receipt Date: 20180317
  Transmission Date: 20180509
  Serious: Yes (Hospitalization)
  Sender: FDA-Public Use
  Company Number: GB-AUROBINDO-AUR-APL-2018-014428

PATIENT
  Age: 76 Year
  Sex: Female

DRUGS (8)
  1. EBIXA [Suspect]
     Active Substance: MEMANTINE HYDROCHLORIDE
     Dosage: 10 MILLILITER, ONCE A DAY
     Route: 048
  2. LEVOTHYROXINE. [Concomitant]
     Active Substance: LEVOTHYROXINE
     Indication: PRODUCT USED FOR UNKNOWN INDICATION
     Dosage: 100 MILLIGRAM, ONCE A DAY
     Route: 065
  3. ZOPICLONE [Concomitant]
     Active Substance: ZOPICLONE
     Indication: PRODUCT USED FOR UNKNOWN INDICATION
     Dosage: 3.75 MILLIGRAM, ONCE A DAY, AT NIGHT
     Route: 065
  4. SIMVASTATIN FILM-COATED TABLET [Suspect]
     Active Substance: SIMVASTATIN
     Indication: PRODUCT USED FOR UNKNOWN INDICATION
     Dosage: 40 MILLIGRAM, ONCE A DAY, AT NIGHT
     Route: 065
  5. FLUOXETINE [Concomitant]
     Active Substance: FLUOXETINE HYDROCHLORIDE
     Indication: PRODUCT USED FOR UNKNOWN INDICATION
     Dosage: 5 MILLIGRAM, ONCE A DAY
     Route: 065
  6. EBIXA [Suspect]
     Active Substance: MEMANTINE HYDROCHLORIDE
     Indication: DEMENTIA
     Dosage: 7.5 MILLILITER, ONCE A DAY
     Route: 048
  7. EBIXA [Suspect]
     Active Substance: MEMANTINE HYDROCHLORIDE
     Dosage: 5 MILLILITER, ONCE A DAY
     Route: 048
  8. EBIXA [Suspect]
     Active Substance: MEMANTINE HYDROCHLORIDE
     Dosage: 2.5 MILLILITER
     Route: 048
     Dates: start: 20170706

REACTIONS (4)
  - Diarrhoea [Unknown]
  - Fatigue [Unknown]
  - Drug dispensing error [Unknown]
  - Accidental overdose [Unknown]

NARRATIVE: CASE EVENT DATE: 20170706
